FAERS Safety Report 12069972 (Version 1)
Quarter: 2016Q1

REPORT INFORMATION
  Report Type: Spontaneous
  Country: JP (occurrence: JP)
  Receive Date: 20160211
  Receipt Date: 20160211
  Transmission Date: 20160526
  Serious: Yes (Life-Threatening)
  Sender: FDA-Public Use
  Company Number: PHHY2016JP017386

PATIENT
  Age: 59 Year
  Sex: Male

DRUGS (2)
  1. CEFTRIAXONE. [Suspect]
     Active Substance: CEFTRIAXONE
     Indication: LEPTOSPIROSIS
     Dosage: 1 G, BID
     Route: 042
  2. LEVOFLOXACIN. [Concomitant]
     Active Substance: LEVOFLOXACIN
     Indication: LEPTOSPIROSIS
     Dosage: 250 MG, QD
     Route: 042

REACTIONS (1)
  - Jarisch-Herxheimer reaction [Recovered/Resolved]
